FAERS Safety Report 7241189-9 (Version None)
Quarter: 2011Q1

REPORT INFORMATION
  Report Type: 
  Country: None (occurrence: None)
  Receive Date: 20110124
  Receipt Date: 20110119
  Transmission Date: 20110831
  Serious: Yes (Other)
  Sender: FDA-Public Use
  Company Number: BR-ROCHE-740735

PATIENT
  Sex: Male
  Weight: 68 kg

DRUGS (5)
  1. VITAMIN B COMPLEX CAP [Concomitant]
  2. FOLIC ACID [Concomitant]
  3. ENTECAVIR [Concomitant]
  4. PEGINTERFERON ALFA-2A [Suspect]
     Indication: HEPATITIS C
     Dosage: WEEK 43
     Route: 058
     Dates: start: 20100401
  5. LOSARTAN [Concomitant]
     Route: 048

REACTIONS (17)
  - NEUROLOGICAL SYMPTOM [None]
  - PLATELET COUNT DECREASED [None]
  - SERUM FERRITIN INCREASED [None]
  - TOOTH DISORDER [None]
  - NAUSEA [None]
  - EPISTAXIS [None]
  - WHITE BLOOD CELL COUNT DECREASED [None]
  - CHILLS [None]
  - PANCREATIC CYST [None]
  - GASTRITIS [None]
  - MUSCLE SPASMS [None]
  - DRUG INTOLERANCE [None]
  - ANAEMIA [None]
  - DECREASED APPETITE [None]
  - ASTHENIA [None]
  - PYREXIA [None]
  - IMPAIRED HEALING [None]
